FAERS Safety Report 10585420 (Version 1)
Quarter: 2014Q4

REPORT INFORMATION
  Report Type: Spontaneous
  Country: TW (occurrence: TW)
  Receive Date: 20141114
  Receipt Date: 20141114
  Transmission Date: 20150529
  Serious: Yes (Other)
  Sender: FDA-Public Use
  Company Number: TW-ELI_LILLY_AND_COMPANY-TW201411004112

PATIENT
  Age: 33 Year
  Sex: Male

DRUGS (4)
  1. OLANZAPINE. [Suspect]
     Active Substance: OLANZAPINE
     Indication: MANIA
     Dosage: 20 MG, QD
     Route: 048
  2. OLANZAPINE. [Suspect]
     Active Substance: OLANZAPINE
     Indication: MANIA
     Dosage: 20 MG, QD
     Route: 051
  3. CLOZAPINE. [Concomitant]
     Active Substance: CLOZAPINE
     Indication: MANIA
     Dosage: 500 MG, QD
     Route: 065
  4. CARBAMAZEPINE. [Concomitant]
     Active Substance: CARBAMAZEPINE
     Indication: MANIA
     Dosage: 800 MG, QD
     Route: 065

REACTIONS (1)
  - Postoperative ileus [Recovered/Resolved]
